FAERS Safety Report 17298685 (Version 1)
Quarter: 2020Q1

REPORT INFORMATION
  Report Type: Spontaneous
  Country: FR (occurrence: FR)
  Receive Date: 20200121
  Receipt Date: 20200121
  Transmission Date: 20200409
  Serious: Yes (Hospitalization, Other)
  Sender: FDA-Public Use
  Company Number: NVSC2019FR070908

PATIENT
  Age: 69 Year
  Sex: Female
  Weight: 61 kg

DRUGS (5)
  1. ALLOPURINOL. [Suspect]
     Active Substance: ALLOPURINOL
     Indication: PRODUCT USED FOR UNKNOWN INDICATION
     Dosage: UNK
     Route: 065
  2. LEVOTHYROX [Concomitant]
     Active Substance: LEVOTHYROXINE
     Indication: PRODUCT USED FOR UNKNOWN INDICATION
     Dosage: UNK
     Route: 065
  3. VOTRIENT [Suspect]
     Active Substance: PAZOPANIB HYDROCHLORIDE
     Indication: CLEAR CELL RENAL CELL CARCINOMA
     Dosage: 600 MG, UNKNOWN
     Route: 065
     Dates: start: 20191028, end: 20191130
  4. CAPTOPRIL. [Suspect]
     Active Substance: CAPTOPRIL
     Indication: PRODUCT USED FOR UNKNOWN INDICATION
     Dosage: UNK
     Route: 065
  5. ZYLORIC [Concomitant]
     Active Substance: ALLOPURINOL
     Indication: PRODUCT USED FOR UNKNOWN INDICATION
     Dosage: UNK
     Route: 065

REACTIONS (14)
  - Jaundice [Recovered/Resolved]
  - General physical health deterioration [Recovered/Resolved]
  - Drug-induced liver injury [Recovered/Resolved]
  - Cholestasis [Recovered/Resolved]
  - Muscle atrophy [Recovered/Resolved]
  - Nausea [Recovered/Resolved]
  - Cell death [Recovered/Resolved]
  - Asthenia [Recovered/Resolved]
  - Pruritus [Recovered/Resolved]
  - Mental status changes [Recovered/Resolved]
  - Decreased appetite [Recovered/Resolved]
  - Chromaturia [Recovered/Resolved]
  - Fatigue [Recovered/Resolved]
  - Nutritional condition normal [Recovered/Resolved]

NARRATIVE: CASE EVENT DATE: 20191128
